FAERS Safety Report 7712587-1 (Version None)
Quarter: 2011Q3

REPORT INFORMATION
  Report Type: 
  Country: None (occurrence: None)
  Receive Date: 20110826
  Receipt Date: 20110814
  Transmission Date: 20111222
  Serious: Yes (Hospitalization)
  Sender: FDA-Public Use
  Company Number: US-CELGENEUS-163-21880-11082033

PATIENT
  Sex: Male
  Weight: 93 kg

DRUGS (21)
  1. DECADRON [Concomitant]
     Route: 065
  2. INSULIN [Concomitant]
     Route: 065
  3. PROTONIX [Concomitant]
     Route: 065
  4. EXPERIMENTAL CHEMO [Concomitant]
     Route: 065
  5. OXYCONTIN [Concomitant]
     Route: 065
  6. METFORMIN HCL [Concomitant]
     Route: 065
  7. AMITRIPTYLINE HCL [Concomitant]
     Route: 065
  8. SENOKOT [Concomitant]
     Route: 065
  9. MARINOL [Concomitant]
     Route: 065
  10. LASIX [Concomitant]
     Route: 065
  11. POTASSIUM CHLORIDE [Concomitant]
     Route: 065
  12. BACTRIM [Concomitant]
     Route: 065
  13. ZOCOR [Concomitant]
     Route: 065
  14. REVLIMID [Suspect]
     Indication: MULTIPLE MYELOMA
     Dosage: 25 MILLIGRAM
     Route: 048
     Dates: start: 20110601
  15. ACYCLOVIR [Concomitant]
     Route: 065
  16. ARIXTRA [Concomitant]
     Route: 065
  17. REGLAN [Concomitant]
     Route: 065
  18. MULTI-VITAMINS [Concomitant]
     Route: 065
  19. ULTRAM [Concomitant]
     Route: 065
  20. CELEBREX [Concomitant]
     Route: 065
  21. SODIUM CHLORIDE [Concomitant]
     Route: 065

REACTIONS (5)
  - HYPONATRAEMIA [None]
  - VOMITING [None]
  - PANCYTOPENIA [None]
  - HIP FRACTURE [None]
  - NAUSEA [None]
